FAERS Safety Report 12266888 (Version 3)
Quarter: 2016Q2

REPORT INFORMATION
  Report Type: Spontaneous
  Country: HR (occurrence: HR)
  Receive Date: 20160414
  Receipt Date: 20160520
  Transmission Date: 20160815
  Serious: Yes (Life-Threatening, Hospitalization, Other)
  Sender: FDA-Public Use
  Company Number: HR-SA-2016SA072032

PATIENT
  Age: 41 Year
  Sex: Female

DRUGS (43)
  1. DECORTIN [Concomitant]
     Active Substance: PREDNISONE
     Indication: RHEUMATOID ARTHRITIS
     Dates: start: 200712
  2. DECORTIN [Concomitant]
     Active Substance: PREDNISONE
     Indication: RHEUMATOID ARTHRITIS
     Dates: start: 201001, end: 201103
  3. ARAVA [Suspect]
     Active Substance: LEFLUNOMIDE
     Indication: RHEUMATOID ARTHRITIS
     Route: 048
     Dates: start: 201212, end: 201304
  4. ARAVA [Suspect]
     Active Substance: LEFLUNOMIDE
     Indication: RHEUMATOID ARTHRITIS
     Dosage: 10-20 MG
     Route: 048
     Dates: start: 201407
  5. ARAVA [Suspect]
     Active Substance: LEFLUNOMIDE
     Indication: RHEUMATOID ARTHRITIS
     Dosage: DOSE:10-20 MG
     Route: 048
     Dates: start: 200907
  6. HUMIRA [Suspect]
     Active Substance: ADALIMUMAB
     Indication: RHEUMATOID ARTHRITIS
     Dosage: PRE FILLED SYRINGES, SUBCUTANEOUS
     Route: 058
     Dates: start: 201108
  7. ENBREL [Suspect]
     Active Substance: ETANERCEPT
     Dosage: VIALS
     Route: 065
     Dates: start: 201407, end: 201410
  8. DECORTIN [Concomitant]
     Active Substance: PREDNISONE
     Indication: RHEUMATOID ARTHRITIS
     Dates: start: 200802
  9. CALCIUM [Concomitant]
     Active Substance: CALCIUM
     Dates: start: 200712
  10. SOLU-MEDROL [Concomitant]
     Active Substance: METHYLPREDNISOLONE SODIUM SUCCINATE
  11. GOLIMUMAB [Concomitant]
     Active Substance: GOLIMUMAB
  12. DECORTIN [Concomitant]
     Active Substance: PREDNISONE
     Indication: RHEUMATOID ARTHRITIS
     Dates: start: 200707
  13. DECORTIN [Concomitant]
     Active Substance: PREDNISONE
     Indication: RHEUMATOID ARTHRITIS
     Dosage: DOSE: 15-10 MG
     Dates: start: 201309
  14. DECORTIN [Concomitant]
     Active Substance: PREDNISONE
     Indication: RHEUMATOID ARTHRITIS
     Dosage: DOSE: 10-5 MG
     Dates: start: 201407
  15. ARAVA [Suspect]
     Active Substance: LEFLUNOMIDE
     Indication: RHEUMATOID ARTHRITIS
     Route: 048
     Dates: start: 200802
  16. ARAVA [Suspect]
     Active Substance: LEFLUNOMIDE
     Indication: RHEUMATOID ARTHRITIS
     Route: 048
     Dates: start: 201410
  17. ARAVA [Suspect]
     Active Substance: LEFLUNOMIDE
     Indication: RHEUMATOID ARTHRITIS
     Dosage: DOSE:10-20 MG
     Route: 048
     Dates: start: 201403
  18. DECORTIN [Concomitant]
     Active Substance: PREDNISONE
     Indication: RHEUMATOID ARTHRITIS
     Dates: start: 201511
  19. LORSILAN [Concomitant]
  20. COAXIL [Concomitant]
  21. SOLU-MEDROL [Concomitant]
     Active Substance: METHYLPREDNISOLONE SODIUM SUCCINATE
  22. ARAVA [Suspect]
     Active Substance: LEFLUNOMIDE
     Indication: RHEUMATOID ARTHRITIS
     Dosage: WHOLE BOTTLE
     Route: 048
     Dates: start: 201103, end: 201103
  23. ARAVA [Suspect]
     Active Substance: LEFLUNOMIDE
     Indication: RHEUMATOID ARTHRITIS
     Route: 048
     Dates: start: 200909
  24. HUMIRA [Suspect]
     Active Substance: ADALIMUMAB
     Indication: RHEUMATOID ARTHRITIS
     Dosage: PRE FILLED SYRINGES, SUBCUTANEOUS
     Route: 058
     Dates: start: 201601
  25. SULFASALAZINE. [Suspect]
     Active Substance: SULFASALAZINE
     Indication: RHEUMATOID ARTHRITIS
     Route: 048
     Dates: start: 201103, end: 201103
  26. SULFASALAZINE. [Suspect]
     Active Substance: SULFASALAZINE
     Indication: RHEUMATOID ARTHRITIS
     Dosage: DOSE + FREQUENCY:2X2
     Route: 048
     Dates: end: 201304
  27. INFLECTRA [Suspect]
     Active Substance: INFLIXIMAB-DYYB
     Dosage: INFUSION AMPOULES
     Route: 065
     Dates: start: 201501, end: 201503
  28. PREDNISONE. [Concomitant]
     Active Substance: PREDNISONE
     Indication: RHEUMATOID ARTHRITIS
     Route: 048
     Dates: start: 201001, end: 201004
  29. DECORTIN [Concomitant]
     Active Substance: PREDNISONE
     Indication: RHEUMATOID ARTHRITIS
     Dates: start: 201410
  30. CIMZIA [Concomitant]
     Active Substance: CERTOLIZUMAB PEGOL
     Dates: end: 201511
  31. ARAVA [Suspect]
     Active Substance: LEFLUNOMIDE
     Indication: RHEUMATOID ARTHRITIS
     Route: 048
     Dates: start: 201108
  32. ARAVA [Suspect]
     Active Substance: LEFLUNOMIDE
     Indication: RHEUMATOID ARTHRITIS
     Dosage: DOSE:10-20 MG
     Route: 048
     Dates: start: 201304
  33. HUMIRA [Suspect]
     Active Substance: ADALIMUMAB
     Indication: RHEUMATOID ARTHRITIS
     Dosage: PRE FILLED SYRINGES, SUBCUTANEOUS
     Route: 058
     Dates: start: 201001, end: 201004
  34. SULFASALAZINE. [Suspect]
     Active Substance: SULFASALAZINE
     Indication: RHEUMATOID ARTHRITIS
     Dosage: DOSE + FREQUENCY:2X2
     Route: 048
     Dates: start: 201001, end: 201004
  35. DECORTIN [Concomitant]
     Active Substance: PREDNISONE
     Indication: RHEUMATOID ARTHRITIS
     Dosage: 7.5 MG TO 10 MG
     Dates: start: 201603
  36. SEROQUEL [Concomitant]
     Active Substance: QUETIAPINE FUMARATE
  37. ARAVA [Suspect]
     Active Substance: LEFLUNOMIDE
     Indication: RHEUMATOID ARTHRITIS
     Route: 048
     Dates: start: 201001, end: 201004
  38. HUMIRA [Suspect]
     Active Substance: ADALIMUMAB
     Indication: RHEUMATOID ARTHRITIS
     Dosage: PRE FILLED SYRINGES, SUBCUTANEOUS
     Route: 058
     Dates: start: 201212, end: 201304
  39. SULFASALAZINE. [Suspect]
     Active Substance: SULFASALAZINE
     Indication: RHEUMATOID ARTHRITIS
     Dosage: 2 BOTTLES?DOSE + FREQUENCY:2X2
     Route: 048
     Dates: start: 200909
  40. DECORTIN [Concomitant]
     Active Substance: PREDNISONE
     Indication: RHEUMATOID ARTHRITIS
     Dates: start: 201304
  41. DECORTIN [Concomitant]
     Active Substance: PREDNISONE
     Indication: RHEUMATOID ARTHRITIS
     Dosage: DOSE: 10-5 MG
     Dates: start: 201403
  42. VITAMIN D [Concomitant]
     Active Substance: CHOLECALCIFEROL
     Dates: start: 200712
  43. ROACTEMRA [Concomitant]
     Active Substance: TOCILIZUMAB
     Dates: end: 201407

REACTIONS (15)
  - Infusion related reaction [Recovered/Resolved]
  - Eye swelling [Unknown]
  - Suicide attempt [Unknown]
  - Bone erosion [Unknown]
  - Suicide attempt [Unknown]
  - Rheumatoid arthritis [Unknown]
  - General physical health deterioration [Unknown]
  - Pyrexia [Recovered/Resolved]
  - Hepatic enzyme increased [Recovered/Resolved]
  - Bone erosion [Unknown]
  - Polyarthritis [Unknown]
  - Hepatotoxicity [Unknown]
  - Mobility decreased [Unknown]
  - Suicide attempt [Unknown]
  - Abdominal pain [Unknown]

NARRATIVE: CASE EVENT DATE: 201103
